FAERS Safety Report 5818627-9 (Version None)
Quarter: 2008Q3

REPORT INFORMATION
  Report Type: 
  Country: None (occurrence: None)
  Receive Date: 20080723
  Receipt Date: 20080716
  Transmission Date: 20090109
  Serious: Yes (Hospitalization)
  Sender: FDA-Public Use
  Company Number: US-ELI_LILLY_AND_COMPANY-US200807003241

PATIENT
  Age: 62 Year
  Sex: Female

DRUGS (1)
  1. HUMATROPE [Suspect]
     Indication: HYPOPITUITARISM
     Dates: start: 19980101

REACTIONS (9)
  - ASTHENIA [None]
  - BLOOD POTASSIUM DECREASED [None]
  - CYSTITIS [None]
  - DEPRESSION [None]
  - HOSPITALISATION [None]
  - IMMUNE SYSTEM DISORDER [None]
  - MUSCULAR WEAKNESS [None]
  - PYREXIA [None]
  - WRONG DRUG ADMINISTERED [None]
